FAERS Safety Report 4425056-1 (Version None)
Quarter: 2004Q3

REPORT INFORMATION
  Report Type: 
  Country: None (occurrence: None)
  Receive Date: 20040810
  Receipt Date: 20040729
  Transmission Date: 20050211
  Serious: Yes (Hospitalization)
  Sender: FDA-Public Use
  Company Number: 176988

PATIENT
  Sex: Female

DRUGS (2)
  1. AVONEX [Suspect]
     Indication: MULTIPLE SCLEROSIS
     Dosage: 30 MCG QW IM
     Route: 030
     Dates: start: 19970101, end: 20030712
  2. LOVASTATIN [Concomitant]

REACTIONS (12)
  - ABDOMINAL HERNIA [None]
  - BACK PAIN [None]
  - BLADDER SPASM [None]
  - FATIGUE [None]
  - ILEOSTOMY [None]
  - IMMUNOSUPPRESSION [None]
  - IMPAIRED HEALING [None]
  - PARAESTHESIA [None]
  - POLLAKIURIA [None]
  - POSTOPERATIVE ABSCESS [None]
  - POSTOPERATIVE INFECTION [None]
  - SENSATION OF HEAVINESS [None]
